FAERS Safety Report 25760560 (Version 1)
Quarter: 2025Q3

REPORT INFORMATION
  Report Type: Spontaneous
  Country: US (occurrence: US)
  Receive Date: 20250904
  Receipt Date: 20250904
  Transmission Date: 20251020
  Serious: No
  Sender: SANOFI AVENTIS
  Company Number: US-SA-2025SA264406

PATIENT
  Age: 20 Year

DRUGS (1)
  1. LOVENOX [Suspect]
     Active Substance: ENOXAPARIN SODIUM
     Indication: Sickle cell anaemia with crisis
     Dosage: 80 MG, BID
     Route: 058

REACTIONS (1)
  - Off label use [Unknown]
